FAERS Safety Report 15220637 (Version 6)
Quarter: 2021Q3

REPORT INFORMATION
  Report Type: Report from Study
  Country: DE (occurrence: DE)
  Receive Date: 20180731
  Receipt Date: 20210928
  Transmission Date: 20211014
  Serious: Yes (Death, Life-Threatening, Hospitalization)
  Sender: FDA-Public Use
  Company Number: DE-TAIHO ONCOLOGY  INC-IM-2018-00014

PATIENT
  Age: 74 Year
  Sex: Female
  Weight: 90 kg

DRUGS (12)
  1. AMLODIPINE [Concomitant]
     Active Substance: AMLODIPINE BESYLATE
     Indication: HYPERTENSION
     Dosage: 5 MG, QD
     Route: 048
     Dates: end: 20180807
  2. TORASEMIDE [Concomitant]
     Active Substance: TORSEMIDE
     Indication: LYMPHOEDEMA
  3. TORASEMIDE [Concomitant]
     Active Substance: TORSEMIDE
     Indication: HYPERTENSION
     Dosage: 5 MG, QD
     Route: 048
     Dates: start: 20170103, end: 20180807
  4. VITAMIN D [Concomitant]
     Active Substance: VITAMIN D NOS
     Indication: VITAMIN SUPPLEMENTATION
     Route: 048
     Dates: start: 20180717, end: 20180807
  5. LONSURF [Suspect]
     Active Substance: TIPIRACIL HYDROCHLORIDE\TRIFLURIDINE
     Indication: COLORECTAL CANCER METASTATIC
     Dosage: 60 MG (UNK MG/M2), BID, ORALLY, ON DAYS 1?5 AND 8?12 OF EACH 28?DAY CYCLE
     Route: 048
     Dates: start: 20180709, end: 20180716
  6. HEPARIN SODIUM. [Concomitant]
     Active Substance: HEPARIN SODIUM
     Indication: THROMBOSIS PROPHYLAXIS
     Route: 058
     Dates: start: 20180717, end: 20180807
  7. PANTOZOL [Concomitant]
     Active Substance: PANTOPRAZOLE SODIUM
     Indication: PRODUCT USED FOR UNKNOWN INDICATION
     Dosage: 40 MG, QD
     Route: 048
     Dates: start: 20150615, end: 20180807
  8. RAMIPRIL. [Concomitant]
     Active Substance: RAMIPRIL
     Indication: HYPERTENSION
     Dosage: 5 MG, BID
     Route: 048
     Dates: end: 20180807
  9. METOPROLOL. [Concomitant]
     Active Substance: METOPROLOL
     Indication: HYPERTENSION
     Dosage: 95 MG, BID
     Route: 048
     Dates: start: 20160615, end: 20180807
  10. EBRANTIL [Concomitant]
     Active Substance: URAPIDIL
     Indication: HYPERTENSION
     Dosage: 60 MG, BID
     Route: 048
     Dates: start: 20160615, end: 20180807
  11. BLEMAREN [Concomitant]
     Indication: RENAL FAILURE
     Dosage: 1 DF, BID
     Route: 054
     Dates: start: 20160615, end: 20180807
  12. CLEXANE [Concomitant]
     Active Substance: ENOXAPARIN SODIUM
     Indication: THROMBOSIS
     Dosage: 0.8 ML, QD
     Route: 058
     Dates: start: 20160829, end: 20180807

REACTIONS (4)
  - Malignant neoplasm progression [Fatal]
  - Acute kidney injury [Recovering/Resolving]
  - Hepatic failure [Fatal]
  - Hepatic encephalopathy [Fatal]

NARRATIVE: CASE EVENT DATE: 20180716
